FAERS Safety Report 7104993-3 (Version None)
Quarter: 2010Q4

REPORT INFORMATION
  Report Type: 
  Country: None (occurrence: None)
  Receive Date: 20101116
  Receipt Date: 20101108
  Transmission Date: 20110411
  Serious: Yes (Other)
  Sender: FDA-Public Use
  Company Number: PHFR2010GB05319

PATIENT
  Sex: Male

DRUGS (1)
  1. TEGRETOL [Suspect]
     Dosage: 200 MG, BID
     Route: 048

REACTIONS (2)
  - CONVULSION [None]
  - PSYCHOMOTOR HYPERACTIVITY [None]
